FAERS Safety Report 17375685 (Version 1)
Quarter: 2020Q1

REPORT INFORMATION
  Report Type: Report from Study
  Country: US (occurrence: US)
  Receive Date: 20200206
  Receipt Date: 20200206
  Transmission Date: 20200409
  Serious: Yes (Hospitalization, Other)
  Sender: FDA-Public Use
  Company Number: US-ADVANZ PHARMA-202001000581

PATIENT

DRUGS (9)
  1. ZOFRAN [Concomitant]
     Active Substance: ONDANSETRON HYDROCHLORIDE
     Indication: NAUSEA
     Dosage: 1 TAB PO Q8 HOURS PRN
     Route: 048
     Dates: start: 20140320
  2. TAGRISSO [Suspect]
     Active Substance: OSIMERTINIB
     Dosage: 40 MG DAILY
     Route: 048
     Dates: start: 20180403
  3. LOMOTIL [Concomitant]
     Active Substance: ATROPINE SULFATE\DIPHENOXYLATE HYDROCHLORIDE
     Indication: DIARRHOEA
     Dosage: 1-2 TABS BID-QUID PRN
     Route: 048
     Dates: start: 20180322
  4. MEGACE [Concomitant]
     Active Substance: MEGESTROL ACETATE
     Indication: PRODUCT USED FOR UNKNOWN INDICATION
     Dosage: 625 MG/5 ML, 5 ML DAILY
     Route: 048
     Dates: start: 20150127
  5. METOPROLOL , HYDROCHLOROTHIAZIDE (HYDROCHLOROTHIAZIDE\METOPROLOL SUCCINATE) [Suspect]
     Active Substance: HYDROCHLOROTHIAZIDE\METOPROLOL SUCCINATE
     Indication: PRODUCT USED FOR UNKNOWN INDICATION
     Dosage: 25 MG /12.5 MG, ORAL FORMULATION: TABLET
     Route: 048
     Dates: start: 20140708
  6. TAGRISSO [Suspect]
     Active Substance: OSIMERTINIB
     Indication: NON-SMALL CELL LUNG CANCER STAGE IV
     Dosage: 80 MG DAILY
     Route: 048
     Dates: start: 20171218
  7. HYDROCODONE [Concomitant]
     Active Substance: HYDROCODONE
     Indication: PRODUCT USED FOR UNKNOWN INDICATION
     Dosage: AS REQUIRED
     Route: 065
     Dates: start: 20141202
  8. LOMOTIL [Concomitant]
     Active Substance: ATROPINE SULFATE\DIPHENOXYLATE HYDROCHLORIDE
     Dosage: 1-2 TABS BID-QUID PRN
     Route: 048
     Dates: start: 20180403
  9. PROCHLORPERAZINE MALEATE. [Concomitant]
     Active Substance: PROCHLORPERAZINE MALEATE
     Indication: NAUSEA
     Dosage: 1 TAB PO Q4 HOURS PRN
     Route: 048
     Dates: start: 20140320

REACTIONS (14)
  - Diarrhoea [Recovered/Resolved]
  - Malignant neoplasm progression [Unknown]
  - Product dose omission [Unknown]
  - Thrombocytopenia [Unknown]
  - Renal failure [Unknown]
  - Diverticulum [Unknown]
  - Fatigue [Not Recovered/Not Resolved]
  - Cholelithiasis [Unknown]
  - Cellulitis [Unknown]
  - Oedema peripheral [Unknown]
  - Constipation [Unknown]
  - Nausea [Recovered/Resolved]
  - Off label use [Unknown]
  - Pneumothorax [Unknown]

NARRATIVE: CASE EVENT DATE: 201510
